FAERS Safety Report 14447819 (Version 2)
Quarter: 2018Q1

REPORT INFORMATION
  Report Type: Spontaneous
  Country: US (occurrence: US)
  Receive Date: 20180126
  Receipt Date: 20180307
  Transmission Date: 20180509
  Serious: Yes (Other)
  Sender: FDA-Public Use
  Company Number: US-SAOL THERAPEUTICS-0700726277

PATIENT
  Sex: Female

DRUGS (7)
  1. CLARITIN [Suspect]
     Active Substance: LORATADINE
     Dosage: 10 MG, AS NEEDED
  2. LIORESAL [Suspect]
     Active Substance: BACLOFEN
     Indication: MUSCLE SPASTICITY
     Dosage: 148.98 ?G, \DAY
     Route: 037
  3. DULCOLAX NOS [Suspect]
     Active Substance: BISACODYL OR DOCUSATE SODIUM
     Dosage: 10 MG, AS NEEDED
  4. ZOFRAN [Suspect]
     Active Substance: ONDANSETRON HYDROCHLORIDE
     Dosage: 4 MG, AS NEEDED
  5. LIORESAL [Suspect]
     Active Substance: BACLOFEN
     Dosage: 155.17 ?G, \DAY
  6. LIORESAL [Suspect]
     Active Substance: BACLOFEN
     Indication: CEREBRAL PALSY
     Dosage: 133.95 ?G, \DAY
  7. MIRALAX [Suspect]
     Active Substance: POLYETHYLENE GLYCOL 3350
     Dosage: UNK, AS NEEDED

REACTIONS (13)
  - Paralysis [Unknown]
  - Hypotonia [Unknown]
  - Asthenia [Unknown]
  - Stenosis [Unknown]
  - Granuloma [Unknown]
  - Disease progression [Unknown]
  - Anal incontinence [Unknown]
  - Syncope [Unknown]
  - Spinal cord compression [Unknown]
  - Movement disorder [Unknown]
  - Muscle spasticity [Unknown]
  - Weight bearing difficulty [Unknown]
  - Performance status decreased [Unknown]

NARRATIVE: CASE EVENT DATE: 2014
